FAERS Safety Report 7912279-X (Version None)
Quarter: 2011Q4

REPORT INFORMATION
  Report Type: 
  Country: None (occurrence: None)
  Receive Date: 20111114
  Receipt Date: 20111104
  Transmission Date: 20120403
  Serious: Yes (Hospitalization, Disabling, Other)
  Sender: FDA-Public Use
  Company Number: US-MERCK-1106USA02216

PATIENT
  Age: 66 Year
  Sex: Female

DRUGS (7)
  1. FOSAMAX [Suspect]
     Indication: OSTEOPOROSIS
     Route: 048
     Dates: start: 19950101, end: 20090601
  2. DICLOFENAC [Concomitant]
     Route: 065
     Dates: start: 19910101
  3. POTASSIUM (UNSPECIFIED) [Concomitant]
     Route: 048
     Dates: start: 19890101
  4. FOSAMAX [Suspect]
     Route: 048
  5. MAGNESIUM (UNSPECIFIED) [Concomitant]
     Route: 048
     Dates: start: 19890101
  6. CENTRUM SILVER ULTRA WOMENS [Concomitant]
     Route: 048
     Dates: start: 19890101
  7. ASCORBIC ACID [Concomitant]
     Route: 048
     Dates: start: 19890101

REACTIONS (81)
  - FEMUR FRACTURE [None]
  - INTRA-ABDOMINAL HAEMATOMA [None]
  - DEPRESSION [None]
  - DELIRIUM [None]
  - OSTEOARTHRITIS [None]
  - HYPOPHOSPHATAEMIA [None]
  - DEVICE MALFUNCTION [None]
  - HAEMORRHAGIC ANAEMIA [None]
  - ANAEMIA [None]
  - HYDROCEPHALUS [None]
  - MALNUTRITION [None]
  - THROMBOPHLEBITIS [None]
  - SINUS TACHYCARDIA [None]
  - INGUINAL HERNIA [None]
  - CLOSTRIDIAL INFECTION [None]
  - INTERVERTEBRAL DISC DEGENERATION [None]
  - ANAEMIA POSTOPERATIVE [None]
  - ADVERSE EVENT [None]
  - POLLAKIURIA [None]
  - MUSCLE SPASMS [None]
  - OSTEOPENIA [None]
  - GASTROOESOPHAGEAL REFLUX DISEASE [None]
  - BRONCHITIS VIRAL [None]
  - ANXIETY [None]
  - DECREASED APPETITE [None]
  - ASCITES [None]
  - HYPONATRAEMIA [None]
  - BODY HEIGHT DECREASED [None]
  - ABSCESS [None]
  - SUBENDOCARDIAL ISCHAEMIA [None]
  - HEADACHE [None]
  - FALL [None]
  - NAUSEA [None]
  - MENINGITIS ENTEROCOCCAL [None]
  - IMPAIRED HEALING [None]
  - SHUNT INFECTION [None]
  - EXCORIATION [None]
  - OEDEMA PERIPHERAL [None]
  - DYSLIPIDAEMIA [None]
  - ARTHRALGIA [None]
  - PLEURAL EFFUSION [None]
  - CEREBRAL SMALL VESSEL ISCHAEMIC DISEASE [None]
  - HIP FRACTURE [None]
  - HEAD INJURY [None]
  - MEMORY IMPAIRMENT [None]
  - HYPOKALAEMIA [None]
  - SMALL INTESTINAL PERFORATION [None]
  - RESPIRATORY DISTRESS [None]
  - DIVERTICULUM [None]
  - FAILURE TO THRIVE [None]
  - DECUBITUS ULCER [None]
  - CONVULSION [None]
  - OPEN FRACTURE [None]
  - HAEMATURIA [None]
  - ELECTROLYTE IMBALANCE [None]
  - INTERNAL HERNIA [None]
  - HYPOXIA [None]
  - HYPOMAGNESAEMIA [None]
  - PULMONARY OEDEMA [None]
  - WEIGHT DECREASED [None]
  - LACERATION [None]
  - PAIN IN EXTREMITY [None]
  - PAIN [None]
  - ACUTE RESPIRATORY DISTRESS SYNDROME [None]
  - HYPERCALCAEMIA [None]
  - OBSTRUCTION [None]
  - HYPOALBUMINAEMIA [None]
  - URINARY TRACT INFECTION [None]
  - SMALL INTESTINAL OBSTRUCTION [None]
  - BRONCHITIS [None]
  - MENOPAUSE [None]
  - COUGH [None]
  - BONE PAIN [None]
  - HYPERTENSION [None]
  - ATELECTASIS [None]
  - BACTERIAL SEPSIS [None]
  - DEEP VEIN THROMBOSIS [None]
  - TREMOR [None]
  - PNEUMONIA ASPIRATION [None]
  - CHEST PAIN [None]
  - BLOOD CHOLESTEROL INCREASED [None]
